FAERS Safety Report 23736238 (Version 2)
Quarter: 2024Q2

REPORT INFORMATION
  Report Type: Spontaneous
  Country: US (occurrence: US)
  Receive Date: 20240412
  Receipt Date: 20240605
  Transmission Date: 20240716
  Serious: No
  Sender: FDA-Public Use
  Company Number: US-ALNYLAM PHARMACEUTICALS, INC.-ALN-2024-001989

PATIENT

DRUGS (3)
  1. OXLUMO [Suspect]
     Active Substance: LUMASIRAN
     Indication: Product used for unknown indication
     Dosage: 2.5 MILLIGRAM/KILOGRAM
     Route: 065
  2. OXLUMO [Suspect]
     Active Substance: LUMASIRAN
     Dosage: 1/5 MG/KG, MONTHLY
     Route: 065
  3. OXLUMO [Suspect]
     Active Substance: LUMASIRAN
     Dosage: 1.25 MILLIGRAM/KILOGRAM, Q2W
     Route: 065

REACTIONS (3)
  - Prescribed underdose [Unknown]
  - Adverse drug reaction [Unknown]
  - Condition aggravated [Unknown]
